FAERS Safety Report 12955937 (Version 3)
Quarter: 2017Q2

REPORT INFORMATION
  Report Type: Spontaneous
  Country: US (occurrence: US)
  Receive Date: 20161118
  Receipt Date: 20170623
  Transmission Date: 20170830
  Serious: Yes (Hospitalization)
  Sender: FDA-Public Use
  Company Number: US-MALLINCKRODT-T201605800

PATIENT
  Age: 7 Month
  Sex: Male

DRUGS (6)
  1. H.P. ACTHAR [Suspect]
     Active Substance: CORTICOTROPIN
     Dosage: 0.2ML TWICE DAILY
     Route: 065
     Dates: start: 201610
  2. PYRIDOXINE [Concomitant]
     Active Substance: PYRIDOXINE
  3. RANITIDINE. [Concomitant]
     Active Substance: RANITIDINE
  4. H.P. ACTHAR [Suspect]
     Active Substance: CORTICOTROPIN
     Indication: INFANTILE SPASMS
     Dosage: 0.15 ML TWICE DAILY
     Route: 065
     Dates: start: 20161011, end: 2016
  5. PHENOBARBITAL. [Concomitant]
     Active Substance: PHENOBARBITAL
  6. KEPPRA [Concomitant]
     Active Substance: LEVETIRACETAM

REACTIONS (4)
  - Pneumonia [Recovering/Resolving]
  - Syringe issue [Unknown]
  - Incorrect dose administered [Unknown]
  - Drug administration error [Unknown]

NARRATIVE: CASE EVENT DATE: 20161029
